FAERS Safety Report 9640018 (Version 1)
Quarter: 2013Q4

REPORT INFORMATION
  Report Type: Spontaneous
  Country: NO (occurrence: NO)
  Receive Date: 20131023
  Receipt Date: 20131023
  Transmission Date: 20140711
  Serious: Yes (Life-Threatening)
  Sender: FDA-Public Use
  Company Number: PHHY2013NO118072

PATIENT
  Age: 42 Year
  Sex: Female

DRUGS (4)
  1. RITALIN [Suspect]
     Indication: ATTENTION DEFICIT/HYPERACTIVITY DISORDER
     Dosage: 60 MG
     Route: 048
     Dates: start: 2005, end: 20130913
  2. SIMVASTATIN [Concomitant]
     Indication: HYPERCHOLESTEROLAEMIA
     Dosage: 40 MG
     Route: 048
  3. LEVAXIN [Concomitant]
     Indication: HYPOTHYROIDISM
     Dosage: 150 UG
     Route: 048
  4. LIOTHYRONIN [Concomitant]
     Indication: HYPOTHYROIDISM
     Dosage: 60 UG
     Route: 048

REACTIONS (1)
  - Cerebral infarction [Recovering/Resolving]
